FAERS Safety Report 10983991 (Version 1)
Quarter: 2015Q2

REPORT INFORMATION
  Report Type: Spontaneous
  Country: IN (occurrence: None)
  Receive Date: 20150401
  Receipt Date: 20150401
  Transmission Date: 20150821
  Serious: No
  Sender: FDA-Public Use
  Company Number: 1576741

PATIENT
  Age: 50 Year
  Sex: Female

DRUGS (4)
  1. RISPERIDONE (NON-SPECIFIC) [Suspect]
     Active Substance: RISPERIDONE
     Indication: SCHIZOAFFECTIVE DISORDER
  2. TRIHEXYPHENIDYL [Concomitant]
     Active Substance: TRIHEXYPHENIDYL
  3. ZUCLOPENTHIXOL DEPOT [Concomitant]
     Active Substance: ZUCLOPENTHIXOL
  4. VALPROIC ACID. [Suspect]
     Active Substance: VALPROIC ACID
     Indication: SCHIZOAFFECTIVE DISORDER

REACTIONS (5)
  - Vomiting [None]
  - Decreased appetite [None]
  - Tremor [None]
  - Hyperammonaemia [None]
  - Asthenia [None]
